FAERS Safety Report 9585796 (Version 1)
Quarter: 2013Q4

REPORT INFORMATION
  Report Type: Spontaneous
  Country: DE (occurrence: DE)
  Receive Date: 20131003
  Receipt Date: 20131003
  Transmission Date: 20140711
  Serious: Yes (Other)
  Sender: FDA-Public Use
  Company Number: DE-BRISTOL-MYERS SQUIBB COMPANY-19416155

PATIENT
  Age: 95 Year
  Sex: Male

DRUGS (3)
  1. ELIQUIS [Suspect]
     Indication: ATRIAL FIBRILLATION
     Dosage: CUMULATIVE DOSE TO THE FIRST REACTION WAS 410 MG APIXABAN
     Route: 048
     Dates: start: 20130429, end: 20130820
  2. RAMIPRIL [Concomitant]
     Indication: HYPERTENSION
     Dosage: 1 DF=5/12.5 MG
  3. BELOC-ZOK MITE [Concomitant]
     Dosage: 0.5 MG IN TWO SEPARATE DOSAGES PER DAY
     Route: 048

REACTIONS (1)
  - Hepatic enzyme increased [Recovered/Resolved]
